FAERS Safety Report 11029421 (Version 1)
Quarter: 2015Q2

REPORT INFORMATION
  Report Type: Spontaneous
  Country: US (occurrence: US)
  Receive Date: 20150415
  Receipt Date: 20150415
  Transmission Date: 20150821
  Serious: No
  Sender: FDA-Public Use
  Company Number: US-ASTRAZENECA-2013SE60417

PATIENT
  Age: 69 Year
  Sex: Female
  Weight: 59.4 kg

DRUGS (4)
  1. SYMBICORT [Suspect]
     Active Substance: BUDESONIDE\FORMOTEROL FUMARATE DIHYDRATE
     Dosage: 160MCG/4.5MCG; 2 PUFFS TWICE A DAY
     Route: 055
     Dates: start: 20150222
  2. LOSARTAN [Concomitant]
     Active Substance: LOSARTAN
  3. BYDUREON [Suspect]
     Active Substance: EXENATIDE
     Indication: TYPE 2 DIABETES MELLITUS
     Route: 058
  4. METFORMIN [Concomitant]
     Active Substance: METFORMIN HYDROCHLORIDE
     Dosage: 1DF:1000 UNIT NOS

REACTIONS (2)
  - Weight increased [Unknown]
  - Drug ineffective [Unknown]
